FAERS Safety Report 7933805-0 (Version None)
Quarter: 2011Q4

REPORT INFORMATION
  Report Type: 
  Country: None (occurrence: None)
  Receive Date: 20111122
  Receipt Date: 20111116
  Transmission Date: 20120403
  Serious: Yes (Other)
  Sender: FDA-Public Use
  Company Number: PHHY2011BR101626

PATIENT
  Sex: Female

DRUGS (1)
  1. ZOLEDRONOC ACID [Suspect]
     Route: 042

REACTIONS (8)
  - VARICOSE ULCERATION [None]
  - OSTEOPENIA [None]
  - GAIT DISTURBANCE [None]
  - SYSTEMIC SCLEROSIS [None]
  - MASTICATION DISORDER [None]
  - FALL [None]
  - ASTHENIA [None]
  - MUSCULAR WEAKNESS [None]
